FAERS Safety Report 8823621 (Version 1)
Quarter: 2012Q4

REPORT INFORMATION
  Report Type: 
  Country: FR (occurrence: FR)
  Receive Date: 20121003
  Receipt Date: 20121003
  Transmission Date: 20130627
  Serious: Yes (Hospitalization)
  Sender: FDA-Public Use
  Company Number: PHHY2012FR083539

PATIENT
  Age: 43 Year
  Sex: Male

DRUGS (6)
  1. TACROLIMUS [Suspect]
     Dosage: 5 mg, BID
  2. TACROLIMUS [Interacting]
     Dosage: 3 mg, BID
  3. TACROLIMUS [Interacting]
     Dosage: 8 mg, BID
  4. VORICONAZOLE [Interacting]
     Dosage: 200 mg, BID
  5. MYCOPHENOLATE MOFETIL [Concomitant]
     Dosage: 500 mg, BID
  6. CORTICOSTEROIDS [Concomitant]
     Dates: end: 200808

REACTIONS (5)
  - Arthralgia [Unknown]
  - Pneumonia haemophilus [Unknown]
  - Agranulocytosis [Unknown]
  - Transplant rejection [Unknown]
  - Drug interaction [Unknown]
